FAERS Safety Report 16416167 (Version 3)
Quarter: 2019Q4

REPORT INFORMATION
  Report Type: Spontaneous
  Country: US (occurrence: US)
  Receive Date: 20190611
  Receipt Date: 20191122
  Transmission Date: 20200122
  Serious: Yes (Other)
  Sender: FDA-Public Use
  Company Number: US-PFIZER INC-2019248920

PATIENT
  Age: 66 Year

DRUGS (3)
  1. VIAGRA [Suspect]
     Active Substance: SILDENAFIL CITRATE
     Dosage: 100 MG, UNK (10 PILLS)
     Route: 048
     Dates: start: 20101209, end: 20150831
  2. VIAGRA [Suspect]
     Active Substance: SILDENAFIL CITRATE
     Indication: ERECTILE DYSFUNCTION
     Dosage: UNK
     Route: 048
     Dates: start: 2008, end: 2016
  3. CIALIS [Suspect]
     Active Substance: TADALAFIL
     Indication: ERECTILE DYSFUNCTION
     Dosage: 20 MG, UNK (10 PILLS)
     Route: 048
     Dates: start: 20140811, end: 20150831

REACTIONS (2)
  - Malignant melanoma [Unknown]
  - Depression [Unknown]

NARRATIVE: CASE EVENT DATE: 20090827
